FAERS Safety Report 21407286 (Version 2)
Quarter: 2022Q4

REPORT INFORMATION
  Report Type: Report from Study
  Country: JP (occurrence: JP)
  Receive Date: 20221004
  Receipt Date: 20221127
  Transmission Date: 20230112
  Serious: Yes (Life-Threatening, Hospitalization, Other)
  Sender: FDA-Public Use
  Company Number: JP-NOVARTISPH-NVSJ2020JP008383

PATIENT
  Age: 6 Year
  Sex: Male
  Weight: 11.9 kg

DRUGS (49)
  1. ILARIS [Suspect]
     Active Substance: CANAKINUMAB
     Indication: Still^s disease
     Dosage: 48 MG
     Route: 058
     Dates: start: 20190814
  2. ILARIS [Suspect]
     Active Substance: CANAKINUMAB
     Indication: Autoimmune disorder
     Dosage: 4 MG/KG, Q4W
     Route: 058
  3. CYCLOSPORINE [Suspect]
     Active Substance: CYCLOSPORINE
     Indication: Autoimmune disorder
     Dosage: UNK
     Route: 065
     Dates: start: 201506
  4. CYCLOSPORINE [Suspect]
     Active Substance: CYCLOSPORINE
     Indication: Psoriatic arthropathy
     Dosage: 6 MG/KG, QD
     Route: 065
  5. TOCILIZUMAB [Suspect]
     Active Substance: TOCILIZUMAB
     Indication: Autoimmune disorder
     Dosage: UNK
     Route: 065
     Dates: start: 201407, end: 201508
  6. TOCILIZUMAB [Suspect]
     Active Substance: TOCILIZUMAB
     Indication: Psoriatic arthropathy
     Dosage: 8 MG/KG, Q2W
     Route: 065
  7. ADALIMUMAB [Suspect]
     Active Substance: ADALIMUMAB
     Indication: Autoimmune disorder
     Dosage: UNK
     Route: 065
     Dates: start: 201508
  8. ADALIMUMAB [Suspect]
     Active Substance: ADALIMUMAB
     Indication: Psoriatic arthropathy
     Dosage: 20 MG, Q2W
     Route: 065
  9. ETANERCEPT [Suspect]
     Active Substance: ETANERCEPT
     Indication: Autoimmune disorder
     Dosage: 0.4 MG/KG, BIW
     Route: 065
  10. INFLIXIMAB [Suspect]
     Active Substance: INFLIXIMAB
     Indication: Autoimmune disorder
     Dosage: 8 MG/KG, Q3W
     Route: 065
  11. TOFACITINIB [Suspect]
     Active Substance: TOFACITINIB
     Indication: Autoimmune disorder
     Dosage: 5 MG, QD
     Route: 065
  12. TOFACITINIB [Suspect]
     Active Substance: TOFACITINIB
     Dosage: 2.5 MG, QD
     Route: 065
  13. TOFACITINIB [Suspect]
     Active Substance: TOFACITINIB
     Dosage: 5 MG, QD
     Route: 065
  14. GOLIMUMAB [Suspect]
     Active Substance: GOLIMUMAB
     Indication: Autoimmune disorder
     Dosage: 60 MG/M2, Q4W
     Route: 065
  15. PREDNISOLONE [Suspect]
     Active Substance: PREDNISOLONE
     Indication: Autoimmune disorder
     Dosage: 2 MG/KG, QD
     Route: 065
  16. PREDNISOLONE [Suspect]
     Active Substance: PREDNISOLONE
     Dosage: UNK
     Route: 065
  17. PREDNISOLONE [Suspect]
     Active Substance: PREDNISOLONE
     Dosage: 4.5 MG
     Route: 065
     Dates: start: 201611
  18. PREDNISOLONE [Suspect]
     Active Substance: PREDNISOLONE
     Dosage: 4 MG
     Route: 065
     Dates: start: 201702
  19. PREDNISOLONE [Suspect]
     Active Substance: PREDNISOLONE
     Dosage: 2 MG
     Route: 065
     Dates: start: 201712
  20. PREDNISOLONE [Suspect]
     Active Substance: PREDNISOLONE
     Dosage: 4.5 MG
     Route: 065
     Dates: start: 201712
  21. PREDNISOLONE [Suspect]
     Active Substance: PREDNISOLONE
     Dosage: 0.67 MG/KG
     Route: 065
  22. PREDNISOLONE [Suspect]
     Active Substance: PREDNISOLONE
     Dosage: 0.83 MG/KG
     Route: 065
  23. PREDNISOLONE [Suspect]
     Active Substance: PREDNISOLONE
     Dosage: 1 MG/KG
     Route: 065
  24. PREDNISOLONE [Suspect]
     Active Substance: PREDNISOLONE
     Dosage: 1.5 MG/KG
     Route: 065
  25. PREDNISOLONE [Suspect]
     Active Substance: PREDNISOLONE
     Dosage: 2 MG/KG
     Route: 065
  26. XELJANZ [Concomitant]
     Active Substance: TOFACITINIB CITRATE
     Indication: Aortic valve incompetence
     Dosage: 2.5 MG
     Route: 048
     Dates: start: 20190418, end: 20191125
  27. XELJANZ [Concomitant]
     Active Substance: TOFACITINIB CITRATE
     Indication: Gastrointestinal haemorrhage
  28. PENTASA [Concomitant]
     Active Substance: MESALAMINE
     Indication: Aortic valve incompetence
     Dosage: 500 MG
     Route: 048
     Dates: start: 20190418, end: 2020
  29. PENTASA [Concomitant]
     Active Substance: MESALAMINE
     Indication: Gastrointestinal haemorrhage
     Dosage: 42 MG/KG, QD
     Route: 065
  30. PENTASA [Concomitant]
     Active Substance: MESALAMINE
     Indication: Autoimmune disorder
  31. RHEUMATREX [Concomitant]
     Active Substance: METHOTREXATE SODIUM
     Indication: Still^s disease
     Dosage: 4 MG, QW
     Route: 048
     Dates: start: 2014, end: 20191115
  32. RHEUMATREX [Concomitant]
     Active Substance: METHOTREXATE SODIUM
     Indication: Autoimmune disorder
     Dosage: 7.7 MG/M2, QW
     Route: 065
  33. FOLIC ACID [Concomitant]
     Active Substance: FOLIC ACID
     Indication: Prophylaxis
     Dosage: 5 MG, QW
     Route: 048
     Dates: start: 20160222, end: 20191115
  34. COLCHICINE [Concomitant]
     Active Substance: COLCHICINE
     Indication: Aortic valve incompetence
     Dosage: 0.3 MG
     Route: 048
     Dates: start: 20161124, end: 20191115
  35. COLCHICINE [Concomitant]
     Active Substance: COLCHICINE
     Indication: Gastrointestinal haemorrhage
     Dosage: 0.3 MG, QD
     Route: 065
  36. COLCHICINE [Concomitant]
     Active Substance: COLCHICINE
     Indication: Autoimmune disorder
  37. MIYA-BM [Concomitant]
     Active Substance: CLOSTRIDIUM BUTYRICUM SPORES STRAIN M-55
     Indication: Still^s disease
     Dosage: 1 G
     Route: 048
     Dates: start: 20170123, end: 2020
  38. SULFAMETHOXAZOLE\TRIMETHOPRIM [Concomitant]
     Active Substance: SULFAMETHOXAZOLE\TRIMETHOPRIM
     Indication: Aortic valve incompetence
     Dosage: 0.6 G, QW3
     Route: 048
     Dates: start: 20180606, end: 2020
  39. SULFAMETHOXAZOLE\TRIMETHOPRIM [Concomitant]
     Active Substance: SULFAMETHOXAZOLE\TRIMETHOPRIM
     Indication: Gastrointestinal haemorrhage
  40. DIGOXIN [Concomitant]
     Active Substance: DIGOXIN
     Indication: Aortic valve incompetence
     Dosage: 0.05 G
     Route: 048
     Dates: start: 201511
  41. DIGOXIN [Concomitant]
     Active Substance: DIGOXIN
     Indication: Gastrointestinal haemorrhage
  42. GASTER [Concomitant]
     Active Substance: FAMOTIDINE
     Indication: Aortic valve incompetence
     Dosage: 12 MG
     Route: 065
     Dates: start: 20190809, end: 2020
  43. GASTER [Concomitant]
     Active Substance: FAMOTIDINE
     Indication: Gastrointestinal haemorrhage
  44. FUROSEMIDE [Concomitant]
     Active Substance: FUROSEMIDE
     Indication: Aortic valve incompetence
     Dosage: 0.625 G
     Route: 048
     Dates: start: 201511
  45. FUROSEMIDE [Concomitant]
     Active Substance: FUROSEMIDE
     Indication: Gastrointestinal haemorrhage
  46. SPIRONOLACTONE [Concomitant]
     Active Substance: SPIRONOLACTONE
     Indication: Aortic valve incompetence
     Dosage: 25 MG
     Route: 048
     Dates: start: 201511
  47. SPIRONOLACTONE [Concomitant]
     Active Substance: SPIRONOLACTONE
     Indication: Gastrointestinal haemorrhage
  48. NAPROXEN [Concomitant]
     Active Substance: NAPROXEN
     Indication: Product used for unknown indication
     Dosage: 240 MG
     Route: 065
  49. MESALAMINE [Concomitant]
     Active Substance: MESALAMINE
     Indication: Product used for unknown indication
     Dosage: 500 MG
     Route: 065

REACTIONS (15)
  - Gastrointestinal haemorrhage [Recovered/Resolved]
  - Condition aggravated [Recovered/Resolved]
  - Abdominal pain [Unknown]
  - Melaena [Unknown]
  - Anaemia [Unknown]
  - Still^s disease [Recovered/Resolved]
  - Disease progression [Recovered/Resolved]
  - Pyrexia [Not Recovered/Not Resolved]
  - Drug resistance [Recovered/Resolved]
  - Alanine aminotransferase increased [Unknown]
  - Aspartate aminotransferase increased [Unknown]
  - Lymphocyte count decreased [Unknown]
  - Upper respiratory tract inflammation [Recovered/Resolved]
  - Cough [Recovered/Resolved]
  - Arthralgia [Unknown]

NARRATIVE: CASE EVENT DATE: 20190101
